FAERS Safety Report 25787856 (Version 2)
Quarter: 2025Q3

REPORT INFORMATION
  Report Type: Spontaneous
  Country: CN (occurrence: CN)
  Receive Date: 20250910
  Receipt Date: 20250916
  Transmission Date: 20251020
  Serious: Yes (Life-Threatening, Hospitalization, Other)
  Sender: PFIZER
  Company Number: CN-MLMSERVICE-20250904-PI630083-00270-2

PATIENT
  Age: 59 Year
  Sex: Male

DRUGS (4)
  1. METHYLPREDNISOLONE [Suspect]
     Active Substance: METHYLPREDNISOLONE
     Indication: Immune thrombocytopenia
     Dosage: 60 MG, 1X/DAY
  2. METHYLPREDNISOLONE [Suspect]
     Active Substance: METHYLPREDNISOLONE
  3. METHYLPREDNISOLONE [Suspect]
     Active Substance: METHYLPREDNISOLONE
     Dosage: 40 MG, 1X/DAY
  4. RAFUTROMBOPAG [Concomitant]
     Active Substance: RAFUTROMBOPAG
     Indication: Immune thrombocytopenia
     Dosage: 7.5 MG, 1X/DAY

REACTIONS (10)
  - Acute respiratory distress syndrome [Recovering/Resolving]
  - Aspergillus infection [Recovering/Resolving]
  - Bronchopulmonary aspergillosis [Recovering/Resolving]
  - Enterococcal infection [Recovering/Resolving]
  - Pneumocystis jirovecii pneumonia [Recovering/Resolving]
  - Stenotrophomonas infection [Recovering/Resolving]
  - Cytomegalovirus infection [Recovering/Resolving]
  - Enterobacter infection [Recovering/Resolving]
  - Epstein-Barr virus infection [Recovering/Resolving]
  - Trichosporon infection [Recovering/Resolving]
